FAERS Safety Report 4600240-2 (Version None)
Quarter: 2005Q1

REPORT INFORMATION
  Report Type: 
  Country: None (occurrence: None)
  Receive Date: 20050307
  Receipt Date: 20050218
  Transmission Date: 20050727
  Serious: Yes (Hospitalization)
  Sender: FDA-Public Use
  Company Number: 05-02-0144

PATIENT
  Age: 57 Year
  Sex: Male
  Weight: 81.8 kg

DRUGS (4)
  1. LITHIUM [Suspect]
     Indication: DRUG USE FOR UNKNOWN INDICATION
     Dosage: 1800MG PER DAY
     Route: 048
     Dates: start: 20050111, end: 20050207
  2. CLOZAPINE [Suspect]
     Indication: SCHIZOPHRENIA
     Dosage: 550MG PER DAY
     Route: 048
     Dates: start: 20030401
  3. EFFEXOR XR [Concomitant]
     Indication: DRUG USE FOR UNKNOWN INDICATION
     Route: 048
     Dates: start: 20041229
  4. DEPAKOTE [Concomitant]
     Indication: DRUG USE FOR UNKNOWN INDICATION
     Dosage: 3000MG PER DAY
     Route: 048

REACTIONS (2)
  - PNEUMONIA [None]
  - THERAPEUTIC AGENT TOXICITY [None]
